FAERS Safety Report 5944962-X (Version None)
Quarter: 2008Q4

REPORT INFORMATION
  Report Type: 
  Country: None (occurrence: None)
  Receive Date: 20081107
  Receipt Date: 20081029
  Transmission Date: 20090506
  Serious: Yes (Hospitalization, Other)
  Sender: FDA-Public Use
  Company Number: US-ROCHE-419521

PATIENT
  Sex: Female
  Weight: 76.7 kg

DRUGS (4)
  1. CAPECITABINE [Suspect]
     Indication: BREAST CANCER
     Dosage: DAYS 1-14, FOR CYCLES 5-8
     Route: 048
     Dates: start: 20050914, end: 20050926
  2. TAXOTERE [Suspect]
     Indication: BREAST CANCER
     Dosage: CYCLES 5-8
     Route: 042
     Dates: start: 20050913, end: 20050926
  3. ADRIAMYCIN PFS [Suspect]
     Indication: BREAST CANCER
     Dosage: CYCLES 1-4
     Route: 042
  4. CYTOXAN [Suspect]
     Indication: BREAST CANCER
     Dosage: CYCLES 1-4
     Route: 042

REACTIONS (3)
  - AORTITIS [None]
  - HYPERSENSITIVITY [None]
  - PALMAR-PLANTAR ERYTHRODYSAESTHESIA SYNDROME [None]
